FAERS Safety Report 5926891-0 (Version None)
Quarter: 2008Q4

REPORT INFORMATION
  Report Type: 
  Country: None (occurrence: None)
  Receive Date: 20081022
  Receipt Date: 20081020
  Transmission Date: 20090506
  Serious: Yes (Other)
  Sender: FDA-Public Use
  Company Number: BR-WYE-H05990008

PATIENT
  Sex: Male
  Weight: 75 kg

DRUGS (15)
  1. RAPAMUNE [Suspect]
     Indication: IMMUNOSUPPRESSANT DRUG THERAPY
     Route: 048
     Dates: start: 20080905, end: 20080917
  2. RAPAMUNE [Suspect]
     Indication: PROPHYLAXIS AGAINST TRANSPLANT REJECTION
     Route: 048
     Dates: start: 20080927
  3. OMEPRAZOLE [Concomitant]
     Indication: PROPHYLAXIS AGAINST GASTROINTESTINAL ULCER
     Route: 048
     Dates: start: 20080911, end: 20080913
  4. OMEPRAZOLE [Concomitant]
     Route: 048
     Dates: start: 20080914
  5. SULFAMETHOXAZOLE AND TRIMETHOPRIM [Concomitant]
     Indication: INFECTION PROPHYLAXIS
     Route: 048
     Dates: start: 20080904
  6. METHYLPREDNISOLONE 16MG TAB [Concomitant]
     Indication: KIDNEY TRANSPLANT REJECTION
     Route: 042
     Dates: start: 20080910, end: 20080912
  7. PREDNISONE [Concomitant]
     Indication: IMMUNOSUPPRESSANT DRUG THERAPY
     Route: 048
     Dates: start: 20080904, end: 20080901
  8. PREDNISONE [Concomitant]
     Route: 048
     Dates: start: 20080901
  9. AMLODIPINE [Concomitant]
     Indication: HYPERTENSION
     Route: 048
     Dates: start: 20080908, end: 20080913
  10. AMLODIPINE [Concomitant]
     Route: 048
     Dates: start: 20080914
  11. DIPYRONE TAB [Concomitant]
     Indication: ANALGESIC THERAPY
     Route: 048
     Dates: start: 20080911, end: 20080911
  12. FUROSEMIDE [Concomitant]
     Indication: DIURETIC THERAPY
     Route: 048
     Dates: start: 20080904, end: 20080919
  13. TACROLIMUS [Concomitant]
     Indication: IMMUNOSUPPRESSANT DRUG THERAPY
     Route: 048
     Dates: start: 20080904, end: 20080916
  14. TACROLIMUS [Concomitant]
     Route: 048
     Dates: start: 20080917, end: 20080901
  15. TACROLIMUS [Concomitant]
     Route: 048
     Dates: start: 20080901

REACTIONS (1)
  - URINARY FISTULA [None]
